FAERS Safety Report 9349592 (Version 1)
Quarter: 2013Q2

REPORT INFORMATION
  Report Type: Spontaneous
  Country: GB (occurrence: None)
  Receive Date: 20130611
  Receipt Date: 20130611
  Transmission Date: 20140414
  Serious: Yes (Hospitalization, Disabling)
  Sender: FDA-Public Use
  Company Number: GER/UKI/13/0029927

PATIENT
  Sex: Female
  Weight: 50.8 kg

DRUGS (8)
  1. CIPROFLOXACIN [Suspect]
     Indication: LOWER RESPIRATORY TRACT INFECTION
     Route: 048
     Dates: start: 20130425, end: 20130503
  2. ASPIRIN COATED (ACETYLSALICYLIC ACID) [Concomitant]
  3. BISOPROLOL [Concomitant]
  4. CO-AMILOFRUSE (FRUMIL) [Concomitant]
  5. FLECAINIDE (FLECAINIDE) [Concomitant]
  6. LEVOTHYROXINE [Concomitant]
  7. SERETIDE [Concomitant]
  8. ZOPICLONE [Concomitant]

REACTIONS (3)
  - Tendonitis [None]
  - Contusion [None]
  - Mobility decreased [None]
